FAERS Safety Report 6339933-8 (Version None)
Quarter: 2009Q3

REPORT INFORMATION
  Report Type: 
  Country: None (occurrence: None)
  Receive Date: 20090903
  Receipt Date: 20090827
  Transmission Date: 20100115
  Serious: Yes (Hospitalization, Disabling)
  Sender: FDA-Public Use
  Company Number: AU-ABBOTT-08P-008-0452625-00

PATIENT
  Sex: Male
  Weight: 110 kg

DRUGS (7)
  1. HUMIRA [Suspect]
     Indication: RHEUMATOID ARTHRITIS
     Route: 058
     Dates: start: 20070101, end: 20080715
  2. METHOTREXATE [Suspect]
     Indication: DRUG USE FOR UNKNOWN INDICATION
  3. CELEBREX [Concomitant]
     Indication: RHEUMATOID ARTHRITIS
     Route: 048
     Dates: start: 20080715
  4. PREDNISOLONE [Concomitant]
     Indication: DRUG USE FOR UNKNOWN INDICATION
     Dates: start: 20080715
  5. RAMACE [Concomitant]
     Indication: ESSENTIAL HYPERTENSION
  6. SPIRIVA [Concomitant]
     Indication: RESPIRATORY DISORDER
     Dosage: DAILY
     Route: 055
  7. TENORMIN [Concomitant]
     Indication: ESSENTIAL HYPERTENSION
     Dosage: DAILY

REACTIONS (4)
  - BRONCHITIS [None]
  - DYSPNOEA [None]
  - EMPHYSEMA [None]
  - WEIGHT INCREASED [None]
